FAERS Safety Report 24812822 (Version 1)
Quarter: 2025Q1

REPORT INFORMATION
  Report Type: Spontaneous
  Country: US (occurrence: US)
  Receive Date: 20250107
  Receipt Date: 20250107
  Transmission Date: 20250408
  Serious: Yes (Hospitalization)
  Sender: AMGEN
  Company Number: US-AMGEN-USASP2024256708

PATIENT
  Age: 26 Year
  Sex: Male

DRUGS (1)
  1. PREDNISONE [Suspect]
     Active Substance: PREDNISONE
     Indication: B-cell lymphoma
     Dosage: 60 MILLIGRAM, QD
     Route: 065

REACTIONS (5)
  - Sepsis [Unknown]
  - Fungaemia [Unknown]
  - Bacteraemia [Unknown]
  - Peritonitis [Unknown]
  - Subarachnoid haemorrhage [Unknown]
